FAERS Safety Report 5670432-2 (Version None)
Quarter: 2008Q1

REPORT INFORMATION
  Report Type: 
  Country: None (occurrence: None)
  Receive Date: 20080318
  Receipt Date: 20080307
  Transmission Date: 20080703
  Serious: Yes (Other)
  Sender: FDA-Public Use
  Company Number: US-JNJFOC-20080302044

PATIENT
  Sex: Male
  Weight: 79.38 kg

DRUGS (8)
  1. REMICADE [Suspect]
     Indication: RHEUMATOID ARTHRITIS
     Route: 042
  2. OXYCODONE HCL [Concomitant]
  3. CLONIPINE [Concomitant]
  4. AMITRIPTALINE [Concomitant]
  5. BECLOMETHASONE DIPROPIONATE [Concomitant]
     Route: 061
  6. HYDROCORTISONE [Concomitant]
     Route: 061
  7. ALLEGRA [Concomitant]
  8. NEOSPORIN [Concomitant]

REACTIONS (5)
  - ANKLE FRACTURE [None]
  - BLOOD URIC ACID INCREASED [None]
  - RASH [None]
  - SKIN STRIAE [None]
  - WEIGHT INCREASED [None]
